FAERS Safety Report 25229939 (Version 1)
Quarter: 2025Q2

REPORT INFORMATION
  Report Type: Spontaneous
  Country: CA (occurrence: CA)
  Receive Date: 20250423
  Receipt Date: 20250423
  Transmission Date: 20250716
  Serious: Yes (Other)
  Sender: SANDOZ
  Company Number: CA-SANDOZ-SDZ2023CA029947

PATIENT
  Age: 73 Year
  Sex: Female
  Weight: 55 kg

DRUGS (1)
  1. METFORMIN HYDROCHLORIDE\SITAGLIPTIN HYDROCHLORIDE [Suspect]
     Active Substance: METFORMIN HYDROCHLORIDE\SITAGLIPTIN HYDROCHLORIDE
     Indication: Diabetes mellitus
     Dosage: 50.1 MG/KG, BID (CAPSULE) (50/1000)
     Route: 048
     Dates: start: 20230901

REACTIONS (2)
  - Choking [Unknown]
  - Product physical issue [Unknown]

NARRATIVE: CASE EVENT DATE: 20230901
